FAERS Safety Report 7220445-4 (Version None)
Quarter: 2011Q1

REPORT INFORMATION
  Report Type: 
  Country: None (occurrence: None)
  Receive Date: 20110111
  Receipt Date: 20101230
  Transmission Date: 20110831
  Serious: Yes (Other)
  Sender: FDA-Public Use
  Company Number: PHEH2008US02322

PATIENT
  Sex: Female

DRUGS (21)
  1. FASLODEX [Concomitant]
     Dosage: UNK
     Dates: start: 20050101
  2. DOCETAXEL [Concomitant]
     Indication: BREAST CANCER
  3. KYTRIL [Concomitant]
  4. ADRIAMYCIN PFS [Concomitant]
     Indication: BREAST CANCER
  5. PEPCID [Concomitant]
  6. TAMOXIFEN CITRATE [Concomitant]
  7. TAXOL [Concomitant]
  8. WELLBUTRIN [Concomitant]
     Indication: DEPRESSION
  9. BENADRYL ^WARNER-LAMBERT^               /CAN/ [Concomitant]
  10. ZOMETA [Suspect]
     Dosage: 4MG
     Route: 042
     Dates: start: 20050101
  11. ZOMETA [Suspect]
     Dosage: UNK, EVERY 3 MONTHS
     Dates: start: 20060101, end: 20060101
  12. ASPIRIN [Concomitant]
  13. ARIMIDEX [Concomitant]
  14. ZOLADEX [Concomitant]
  15. COMPAZINE [Concomitant]
  16. DEXAMETHASONE [Concomitant]
  17. ASCORBIC ACID [Concomitant]
  18. PROZAC [Concomitant]
     Indication: DEPRESSION
  19. ASPIRIN [Concomitant]
  20. MULTI-VITAMINS [Concomitant]
  21. AMOXICILLIN [Concomitant]
     Dosage: 250 MG, UNK

REACTIONS (17)
  - DEPRESSION [None]
  - LYMPHOEDEMA [None]
  - OSTEONECROSIS OF JAW [None]
  - BONE DISORDER [None]
  - HEPATIC STEATOSIS [None]
  - HIATUS HERNIA [None]
  - GENERAL PHYSICAL CONDITION ABNORMAL [None]
  - METASTASES TO SPINE [None]
  - OEDEMA PERIPHERAL [None]
  - SWELLING [None]
  - LYMPHADENOPATHY [None]
  - NEOPLASM MALIGNANT [None]
  - DIVERTICULUM INTESTINAL [None]
  - PAIN IN JAW [None]
  - METASTASES TO BONE [None]
  - PAIN [None]
  - ANAEMIA [None]
